FAERS Safety Report 7231826-7 (Version None)
Quarter: 2011Q1

REPORT INFORMATION
  Report Type: 
  Country: None (occurrence: None)
  Receive Date: 20110118
  Receipt Date: 20110111
  Transmission Date: 20110831
  Serious: Yes (Other)
  Sender: FDA-Public Use
  Company Number: CA-TEVA-262926USA

PATIENT
  Age: 18 Year
  Sex: Female

DRUGS (1)
  1. PLAN B [Suspect]
     Indication: POST COITAL CONTRACEPTION
     Dosage: 2 TB (2X0.75 MG) STAT
     Route: 048
     Dates: start: 20110105, end: 20110105

REACTIONS (5)
  - VAGINAL HAEMORRHAGE [None]
  - ABDOMINAL PAIN LOWER [None]
  - NAUSEA [None]
  - THROMBOSIS [None]
  - DYSPNOEA [None]
